FAERS Safety Report 6370859-X (Version None)
Quarter: 2009Q3

REPORT INFORMATION
  Report Type: 
  Country: None (occurrence: None)
  Receive Date: 20090923
  Receipt Date: 20070702
  Transmission Date: 20100115
  Serious: No
  Sender: FDA-Public Use
  Company Number: US-ASTRAZENECA-2006UW23679

PATIENT
  Age: 21842 Day
  Sex: Female
  Weight: 112.5 kg

DRUGS (31)
  1. SEROQUEL [Suspect]
     Indication: BIPOLAR DISORDER
     Dosage: 25-50 MG
     Route: 048
     Dates: start: 20051206
  2. ZYPREXA [Concomitant]
  3. METHADONE [Concomitant]
  4. CELEXA [Concomitant]
  5. KLONOPIN [Concomitant]
  6. TOPAMAX [Concomitant]
  7. NEXIUM [Concomitant]
  8. PAXIL [Concomitant]
  9. ZOLOFT [Concomitant]
  10. VALIUM [Concomitant]
  11. BYETTA [Concomitant]
  12. CYMBALTA [Concomitant]
  13. HYDROCODONE BITARTRATE AND ACETAMINOPHEN [Concomitant]
  14. CLORAZ DIPOT [Concomitant]
  15. CEPHALEXIN [Concomitant]
  16. HYDROXYZ PAM [Concomitant]
  17. LYRICA [Concomitant]
  18. AZITHROMYCIN [Concomitant]
  19. LUNESTA [Concomitant]
  20. MEPROZINE [Concomitant]
  21. HUMULIN R [Concomitant]
  22. AMBIEN [Concomitant]
  23. MUPIROCIN [Concomitant]
  24. ZOCOR [Concomitant]
  25. TRAZODONE [Concomitant]
  26. CYCLOBENZAPRINE [Concomitant]
  27. SYNTHROID [Concomitant]
  28. LIPODERM [Concomitant]
  29. NEURONTIN [Concomitant]
  30. LOTENSIN [Concomitant]
  31. REQUIP [Concomitant]

REACTIONS (5)
  - DIABETES MELLITUS [None]
  - FIBROMYALGIA [None]
  - MIGRAINE [None]
  - MYALGIA [None]
  - MYOSITIS [None]
